FAERS Safety Report 21952638 (Version 1)
Quarter: 2023Q1

REPORT INFORMATION
  Report Type: Report from Study
  Country: US (occurrence: US)
  Receive Date: 20230203
  Receipt Date: 20230203
  Transmission Date: 20230417
  Serious: Yes (Hospitalization)
  Sender: FDA-Public Use
  Company Number: US-EXELIXIS-CABO-22051890

PATIENT
  Age: 58 Year
  Sex: Female

DRUGS (15)
  1. CABOMETYX [Suspect]
     Active Substance: CABOZANTINIB S-MALATE
     Indication: Lung neoplasm malignant
     Dosage: 60 MG, QD
     Route: 048
     Dates: start: 20201001, end: 20201127
  2. CABOMETYX [Suspect]
     Active Substance: CABOZANTINIB S-MALATE
     Indication: Metastases to central nervous system
     Dosage: 60 MG, QOD
     Route: 048
     Dates: start: 202012
  3. CABOMETYX [Suspect]
     Active Substance: CABOZANTINIB S-MALATE
     Dosage: 60 MG, QD
     Route: 048
     Dates: end: 20210105
  4. CABOMETYX [Suspect]
     Active Substance: CABOZANTINIB S-MALATE
     Dosage: 60 MG, QD
     Route: 048
     Dates: start: 202101
  5. CABOMETYX [Suspect]
     Active Substance: CABOZANTINIB S-MALATE
     Dosage: 60 MG, QD
     Route: 048
  6. CABOMETYX [Suspect]
     Active Substance: CABOZANTINIB S-MALATE
     Dosage: 60 MG, QD
     Route: 048
  7. PFIZER-BIONTECH COVID-19 VACCINE [Suspect]
     Active Substance: TOZINAMERAN
     Indication: Immunisation
     Dosage: UNK
     Dates: start: 20210427, end: 20210427
  8. PFIZER-BIONTECH COVID-19 VACCINE [Suspect]
     Active Substance: TOZINAMERAN
     Dosage: UNK
     Dates: start: 20210518, end: 20210518
  9. AMLODIPINE [Concomitant]
     Active Substance: AMLODIPINE BESYLATE
     Indication: Hypertension
  10. ATENOLOL [Concomitant]
     Active Substance: ATENOLOL
  11. HYOSCYAMINE SULFATE [Concomitant]
     Active Substance: HYOSCYAMINE SULFATE
     Indication: Pain
  12. KEPPRA [Concomitant]
     Active Substance: LEVETIRACETAM
  13. LISINOPRIL [Concomitant]
     Active Substance: LISINOPRIL
  14. CHOLECALCIFEROL [Concomitant]
     Active Substance: CHOLECALCIFEROL
  15. HYDROCHLOROTHIAZIDE [Concomitant]
     Active Substance: HYDROCHLOROTHIAZIDE

REACTIONS (30)
  - Seizure [Unknown]
  - Ageusia [Unknown]
  - Neuropathy peripheral [Unknown]
  - Panic attack [Unknown]
  - Skin exfoliation [Unknown]
  - Gastritis [Recovering/Resolving]
  - Uterine malposition [Unknown]
  - Ovarian cyst [Unknown]
  - Colitis [Unknown]
  - Dermatophytosis of nail [Unknown]
  - Paraesthesia [Unknown]
  - Nasal dryness [Unknown]
  - Urinary tract infection [Unknown]
  - Thyroid mass [Unknown]
  - Inappropriate affect [Unknown]
  - Encephalomalacia [Unknown]
  - Myelomalacia [Unknown]
  - Illness [Unknown]
  - Pain [Unknown]
  - Epistaxis [Recovered/Resolved]
  - Decreased appetite [Recovering/Resolving]
  - Blood pressure increased [Unknown]
  - Haematemesis [Unknown]
  - Weight decreased [Unknown]
  - Pain in extremity [Unknown]
  - Hypothyroidism [Unknown]
  - Memory impairment [Recovered/Resolved]
  - Product dose omission issue [Unknown]
  - Off label use [Unknown]
  - Inappropriate schedule of product administration [Unknown]

NARRATIVE: CASE EVENT DATE: 20201001
